FAERS Safety Report 6640995-9 (Version None)
Quarter: 2010Q1

REPORT INFORMATION
  Report Type: 
  Country: None (occurrence: None)
  Receive Date: 20100318
  Receipt Date: 20100312
  Transmission Date: 20100710
  Serious: Yes (Hospitalization)
  Sender: FDA-Public Use
  Company Number: B0609109A

PATIENT
  Sex: Male

DRUGS (5)
  1. KIVEXA [Suspect]
     Indication: HIV INFECTION
     Dosage: 1TAB PER DAY
     Route: 048
     Dates: start: 20091016, end: 20091030
  2. ALLOPURINOL [Suspect]
     Indication: GOUT
     Route: 065
     Dates: start: 20091030, end: 20091031
  3. KALETRA [Suspect]
     Indication: HIV INFECTION
     Dosage: 2UNIT TWICE PER DAY
     Route: 048
     Dates: start: 20091016, end: 20091030
  4. NOVONORM [Suspect]
     Indication: DIABETES MELLITUS
     Dosage: .5MG TWICE PER DAY
     Route: 048
     Dates: start: 20091013, end: 20091030
  5. COLCHIMAX [Concomitant]
     Indication: GOUT
     Route: 065
     Dates: start: 20090928, end: 20091021

REACTIONS (3)
  - ALANINE AMINOTRANSFERASE INCREASED [None]
  - ASPARTATE AMINOTRANSFERASE INCREASED [None]
  - HEPATOCELLULAR INJURY [None]
